FAERS Safety Report 13897886 (Version 2)
Quarter: 2017Q3

REPORT INFORMATION
  Report Type: Spontaneous
  Country: US (occurrence: US)
  Receive Date: 20170823
  Receipt Date: 20170912
  Transmission Date: 20171127
  Serious: Yes (Other)
  Sender: FDA-Public Use
  Company Number: US-GILEAD-2017-0289362

PATIENT
  Age: 64 Year
  Sex: Female
  Weight: 52.61 kg

DRUGS (5)
  1. HARVONI [Suspect]
     Active Substance: LEDIPASVIR\SOFOSBUVIR
     Indication: HEPATITIS C
     Dosage: UNK
     Route: 048
     Dates: start: 20170208, end: 20170405
  2. MEPERIDINE                         /00016301/ [Concomitant]
     Active Substance: MEPERIDINE
  3. DEPO-ESTRADIOL [Concomitant]
     Active Substance: ESTRADIOL CYPIONATE
  4. TIZANIDINE. [Concomitant]
     Active Substance: TIZANIDINE
  5. ALPRAZOLAM. [Concomitant]
     Active Substance: ALPRAZOLAM

REACTIONS (5)
  - Psychiatric symptom [Unknown]
  - Autoscopy [Recovered/Resolved]
  - Amnesia [Not Recovered/Not Resolved]
  - Myalgia [Recovered/Resolved]
  - Polyarthritis [Not Recovered/Not Resolved]

NARRATIVE: CASE EVENT DATE: 20170211
